FAERS Safety Report 15366034 (Version 1)
Quarter: 2018Q3

REPORT INFORMATION
  Report Type: Spontaneous
  Country: CN (occurrence: CN)
  Receive Date: 20180910
  Receipt Date: 20180910
  Transmission Date: 20181010
  Serious: Yes (Hospitalization)
  Sender: FDA-Public Use
  Company Number: CN-MYLANLABS-2018M1065953

PATIENT
  Age: 7 Year
  Sex: Male

DRUGS (29)
  1. DEXAMETHASONE. [Suspect]
     Active Substance: DEXAMETHASONE
     Indication: ACUTE LYMPHOCYTIC LEUKAEMIA
     Dosage: 5 MG, UNK
     Route: 037
  2. CYTARABINE. [Suspect]
     Active Substance: CYTARABINE
     Indication: ACUTE LYMPHOCYTIC LEUKAEMIA
     Dosage: ALL?REZ BFM 2002 REGIMEN; DOSE UNKNOWN
     Route: 065
     Dates: start: 20150218
  3. PREDNISONE. [Suspect]
     Active Substance: PREDNISONE
     Indication: ACUTE LYMPHOCYTIC LEUKAEMIA
     Dosage: ALL?REZ BFM 2002 REGIMEN; DOSE UNKNOWN
     Route: 065
     Dates: start: 20150218
  4. MITOXANTRONE [Suspect]
     Active Substance: MITOXANTRONE HYDROCHLORIDE
     Indication: ACUTE LYMPHOCYTIC LEUKAEMIA
     Dosage: ALL?REZ BFM 2002 REGIMEN; DOSE UNKNOWN
     Route: 065
     Dates: start: 20150218
  5. IDARUBICIN [Suspect]
     Active Substance: IDARUBICIN
     Dosage: ALL?REZ BFM 2002 R1 REGIMEN; DOSE UNKNOWN
     Route: 065
     Dates: start: 201511
  6. VINCRISTINE [Suspect]
     Active Substance: VINCRISTINE
     Dosage: 1.5 MG/M2, ALL?REZ BFM 2002 R1 REGIMEN
     Route: 065
     Dates: start: 201511
  7. CYCLOPHOSPHAMIDE. [Suspect]
     Active Substance: CYCLOPHOSPHAMIDE
     Indication: ACUTE LYMPHOCYTIC LEUKAEMIA
     Dosage: ALL?REZ BFM 2002 REGIMEN; DOSE UNKNOWN
     Route: 065
     Dates: start: 20150218
  8. CYCLOPHOSPHAMIDE. [Suspect]
     Active Substance: CYCLOPHOSPHAMIDE
     Dosage: ALL?REZ BFM 2002 R1 REGIMEN; DOSE UNKNOWN
     Route: 065
     Dates: start: 201511
  9. TIOGUANINE [Suspect]
     Active Substance: THIOGUANINE ANHYDROUS
     Dosage: ALL?REZ BFM 2002 R1 REGIMEN; DOSE UNKNOWN
     Route: 065
     Dates: start: 201511
  10. DEXAMETHASONE. [Suspect]
     Active Substance: DEXAMETHASONE
     Indication: ACUTE LYMPHOCYTIC LEUKAEMIA
     Dosage: ALL?REZ BFM 2002 REGIMEN; DOSE UNKNOWN
     Route: 065
     Dates: start: 20150218
  11. METHOTREXATE. [Suspect]
     Active Substance: METHOTREXATE
     Indication: ACUTE LYMPHOCYTIC LEUKAEMIA
     Dosage: 12.5 MG, UNK
     Route: 037
  12. AZATHIOPRINE. [Suspect]
     Active Substance: AZATHIOPRINE
     Indication: ACUTE LYMPHOCYTIC LEUKAEMIA
     Dosage: ALL?REZ BFM 2002 R1 REGIMEN
     Route: 065
     Dates: start: 201511
  13. MERCAPTOPURINE. [Suspect]
     Active Substance: MERCAPTOPURINE
     Indication: ACUTE LYMPHOCYTIC LEUKAEMIA
     Dosage: ALL?REZ BFM 2002 R1 REGIMEN; DOSE UNKNOWN
     Route: 065
     Dates: start: 201511
  14. TENIPOSIDE. [Suspect]
     Active Substance: TENIPOSIDE
     Indication: ACUTE LYMPHOCYTIC LEUKAEMIA
     Dosage: ALL?REZ BFM 2002 REGIMEN; DOSE UNKNOWN
     Route: 065
     Dates: start: 20150218
  15. DAUNORUBICIN [Suspect]
     Active Substance: DAUNORUBICIN
     Indication: ACUTE LYMPHOCYTIC LEUKAEMIA
     Dosage: ALL?REZ BFM 2002 R1 REGIMEN; DOSE UNKNOWN
     Route: 065
     Dates: start: 201511
  16. CYTARABINE. [Suspect]
     Active Substance: CYTARABINE
     Indication: ACUTE LYMPHOCYTIC LEUKAEMIA
     Dosage: 35 MG,
     Route: 037
  17. IDARUBICIN [Suspect]
     Active Substance: IDARUBICIN
     Indication: ACUTE LYMPHOCYTIC LEUKAEMIA
     Dosage: ALL?REZ BFM 2002 REGIMEN; DOSE UNKNOWN
     Route: 065
     Dates: start: 20150218
  18. METHOTREXATE. [Suspect]
     Active Substance: METHOTREXATE
     Indication: ACUTE LYMPHOCYTIC LEUKAEMIA
     Dosage: ALL?REZ BFM 2002 REGIMEN; DOSE UNKNOWN
     Route: 065
     Dates: start: 20150218
  19. IFOSFAMIDE. [Suspect]
     Active Substance: IFOSFAMIDE
     Indication: ACUTE LYMPHOCYTIC LEUKAEMIA
     Dosage: ALL?REZ BFM 2002 R1 REGIMEN; DOSE UNKNOWN
     Route: 065
     Dates: start: 201511
  20. VINDESINE [Suspect]
     Active Substance: VINDESINE
     Indication: ACUTE LYMPHOCYTIC LEUKAEMIA
     Dosage: ALL?REZ BFM 2002 R1 REGIMEN; DOSE UNKNOWN
     Route: 065
     Dates: start: 201511
  21. METHOTREXATE. [Suspect]
     Active Substance: METHOTREXATE
     Dosage: 1 G/M2; ALL?REZ BFM 2002 R1 REGIMEN
     Route: 065
     Dates: start: 201511
  22. MITOXANTRONE [Suspect]
     Active Substance: MITOXANTRONE HYDROCHLORIDE
     Dosage: ALL?REZ BFM 2002 R1 REGIMEN; DOSE UNKNOWN
     Route: 065
     Dates: start: 201511
  23. ASPARAGINASE [Suspect]
     Active Substance: ASPARAGINASE
     Indication: ACUTE LYMPHOCYTIC LEUKAEMIA
     Dosage: ALL?REZ BFM 2002 REGIMEN; DOSE UNKNOWN
     Route: 065
     Dates: start: 20150218
  24. CYTARABINE. [Suspect]
     Active Substance: CYTARABINE
     Dosage: 2 G/M2; ALL?REZ BFM 2002 R1 REGIMEN
     Route: 065
     Dates: start: 201511
  25. VINCRISTINE [Suspect]
     Active Substance: VINCRISTINE
     Indication: ACUTE LYMPHOCYTIC LEUKAEMIA
     Dosage: ALL?REZ BFM 2002 REGIMEN; DOSE UNKNOWN
     Route: 065
     Dates: start: 20150218
  26. ASPARAGINASE [Suspect]
     Active Substance: ASPARAGINASE
     Dosage: ALL?REZ BFM 2002 R1 REGIMEN; DOSE UNKNOWN
     Route: 065
     Dates: start: 201511
  27. DEXAMETHASONE. [Suspect]
     Active Substance: DEXAMETHASONE
     Dosage: 20 MG/M2,ALL?REZ BFM 2002 R1 REGIMEN
     Route: 065
     Dates: start: 201511
  28. PREDNISONE. [Suspect]
     Active Substance: PREDNISONE
     Dosage: ALL?REZ BFM 2002 R1 REGIMEN; DOSE UNKNOWN
     Route: 065
     Dates: start: 201511
  29. TIOGUANINE [Suspect]
     Active Substance: THIOGUANINE ANHYDROUS
     Indication: ACUTE LYMPHOCYTIC LEUKAEMIA
     Dosage: ALL?REZ BFM 2002 REGIMEN; DOSE UNKNOWN
     Route: 065
     Dates: start: 20150218

REACTIONS (2)
  - Mucormycosis [Recovered/Resolved]
  - Bone marrow failure [Recovered/Resolved]
